FAERS Safety Report 8784678 (Version 2)
Quarter: 2012Q4

REPORT INFORMATION
  Report Type: Spontaneous
  Country: None (occurrence: None)
  Receive Date: 20120831
  Receipt Date: 20120910
  Transmission Date: 20130627
  Serious: Yes (Death, Hospitalization)
  Sender: FDA-Public Use
  Company Number: 2012P1055338

PATIENT
  Age: 73 Year
  Sex: Male
  Weight: 49.9 kg

DRUGS (13)
  1. DIGOXIN [Suspect]
     Indication: CARDIOMYOPATHY
     Route: 048
     Dates: start: 20110228
  2. BLINDED TRIAL MEDICATION INHALATION POWER (NO PREF. NAME) [Suspect]
     Indication: CHRONIC OBSTRUCTIVE PULMONARY DISEASE
     Dates: start: 20111222, end: 20120615
  3. BLINDED TRIAL MEDICATION INHALATION POWER (NO PREF. NAME) [Suspect]
     Indication: CHRONIC OBSTRUCTIVE PULMONARY DISEASE
     Dates: start: 20111222, end: 20120615
  4. BLINDED TRIAL MEDICATION INHALATION POWER (NO PREF. NAME) [Suspect]
     Dates: start: 20111222, end: 20120615
  5. BLINDED TRIAL MEDICATION INHALATION POWER (NO PREF. NAME) [Suspect]
     Indication: COPD
     Dates: start: 20111222, end: 20120615
  6. BLINDED TRIAL MEDICATION INHALATION POWER (NO PREF. NAME) [Suspect]
     Indication: CHRONIC OBSTRUCTIVE PULMONARY DISEASE
     Dates: start: 20111222, end: 20120615
  7. BLINDED TRIAL MEDICATION INHALATION POWER (NO PREF. NAME) [Suspect]
     Indication: CHRONIC OBSTRUCTIVE PULMONARY DISEASE
     Dates: start: 20111222, end: 20120615
  8. LASIX [Concomitant]
  9. AMINOPHYLLINE [Concomitant]
  10. VENTOLIN [Concomitant]
  11. ANDOL [Concomitant]
  12. ENAP [Concomitant]
  13. AMIODARONE [Concomitant]

REACTIONS (2)
  - Fatigue [None]
  - Atrioventricular block [None]
